FAERS Safety Report 6034630-0 (Version None)
Quarter: 2009Q1

REPORT INFORMATION
  Report Type: 
  Country: None (occurrence: None)
  Receive Date: 20090112
  Receipt Date: 20090105
  Transmission Date: 20090719
  Serious: Yes (Death, Hospitalization, Other)
  Sender: FDA-Public Use
  Company Number: FR-PFIZER INC-2008100575

PATIENT

DRUGS (9)
  1. LYRICA [Suspect]
     Indication: NEURALGIA
     Route: 048
     Dates: start: 20081108, end: 20081117
  2. ACETAMINOPHEN WITH PROPOXYPHENE HCL TAB [Suspect]
     Route: 048
     Dates: start: 20081108, end: 20081117
  3. MICARDIS HCT [Suspect]
     Dosage: 80MG/12.5MG
     Dates: start: 20080506, end: 20081120
  4. DEXTROPROPOXYPHENE HYDROCHLORIDE [Concomitant]
     Dates: start: 20081108
  5. MICARDIS HCT [Concomitant]
  6. ROSUVASTATIN CALCIUM [Concomitant]
  7. ACETYLSALICYLATE LYSINE [Concomitant]
  8. BETAXOLOL [Concomitant]
  9. LEVOTHYROXINE SODIUM [Concomitant]

REACTIONS (7)
  - AGITATION [None]
  - BLOOD CREATINE PHOSPHOKINASE INCREASED [None]
  - BLOOD CREATININE INCREASED [None]
  - COMA [None]
  - CONFUSIONAL STATE [None]
  - DELIRIUM [None]
  - HYPONATRAEMIA [None]
